FAERS Safety Report 7261128-4 (Version None)
Quarter: 2011Q1

REPORT INFORMATION
  Report Type: 
  Country: None (occurrence: None)
  Receive Date: 20110130
  Receipt Date: 20101227
  Transmission Date: 20110831
  Serious: No
  Sender: FDA-Public Use
  Company Number: US-ABBOTT-10P-163-0694444-00

PATIENT
  Sex: Female
  Weight: 108.96 kg

DRUGS (1)
  1. HUMIRA [Suspect]
     Indication: PSORIASIS
     Route: 058
     Dates: start: 20101207

REACTIONS (6)
  - OROPHARYNGEAL PAIN [None]
  - SINUS CONGESTION [None]
  - RHINORRHOEA [None]
  - PULMONARY CONGESTION [None]
  - SKIN BURNING SENSATION [None]
  - COUGH [None]
